FAERS Safety Report 8107837-6 (Version None)
Quarter: 2012Q1

REPORT INFORMATION
  Report Type: 
  Country: None (occurrence: None)
  Receive Date: 20120202
  Receipt Date: 20120125
  Transmission Date: 20120608
  Serious: Yes (Other)
  Sender: FDA-Public Use
  Company Number: US-ROCHE-783589

PATIENT
  Sex: Male
  Weight: 120.31 kg

DRUGS (3)
  1. ACCUTANE [Suspect]
     Indication: ACNE
     Route: 065
     Dates: start: 20020401, end: 20020901
  2. FENTANYL CITRATE [Concomitant]
  3. WELLBUTRIN [Concomitant]
     Indication: DEPRESSION

REACTIONS (4)
  - IRRITABLE BOWEL SYNDROME [None]
  - STRESS [None]
  - CROHN'S DISEASE [None]
  - INFLAMMATORY BOWEL DISEASE [None]
